FAERS Safety Report 7369864-6 (Version None)
Quarter: 2011Q1

REPORT INFORMATION
  Report Type: 
  Country: None (occurrence: None)
  Receive Date: 20110323
  Receipt Date: 20110318
  Transmission Date: 20110831
  Serious: Yes (Hospitalization)
  Sender: FDA-Public Use
  Company Number: DE-ABBOTT-11P-062-0713010-00

PATIENT
  Sex: Male
  Weight: 67 kg

DRUGS (6)
  1. HUMIRA [Suspect]
     Indication: CROHN'S DISEASE
     Route: 058
     Dates: start: 20100415
  2. CLONT [Concomitant]
     Indication: CROHN'S DISEASE
     Dosage: 400MG DAILY
     Route: 048
     Dates: start: 20100415, end: 20100425
  3. METRONIDAZOLE [Concomitant]
     Dosage: 400MG DAILY
     Route: 048
     Dates: start: 20110106, end: 20110116
  4. CIPROFLOXACIN [Concomitant]
     Dosage: 500MG DAILY
     Route: 048
     Dates: start: 20101202, end: 20101212
  5. METRONIDAZOLE [Concomitant]
     Indication: CROHN'S DISEASE
     Dosage: 400 DAILY
     Route: 048
     Dates: start: 20100510, end: 20100520
  6. CIPROFLOXACIN [Concomitant]
     Indication: CROHN'S DISEASE
     Dosage: 500MG DAILY
     Route: 048
     Dates: start: 20100510, end: 20100520

REACTIONS (5)
  - SWELLING [None]
  - ERYTHEMA [None]
  - ECZEMA [None]
  - CROHN'S DISEASE [None]
  - FLANK PAIN [None]
